FAERS Safety Report 12301068 (Version 1)
Quarter: 2016Q2

REPORT INFORMATION
  Report Type: Report from Study
  Country: BR (occurrence: BR)
  Receive Date: 20160425
  Receipt Date: 20160425
  Transmission Date: 20160815
  Serious: Yes (Disabling)
  Sender: FDA-Public Use
  Company Number: BR-ABBVIE-16K-020-1608452-00

PATIENT
  Sex: Female
  Weight: 62 kg

DRUGS (14)
  1. STELARA [Concomitant]
     Active Substance: USTEKINUMAB
     Indication: RHEUMATOID ARTHRITIS
     Route: 058
     Dates: start: 201601
  2. PARACETAMOL [Concomitant]
     Active Substance: ACETAMINOPHEN
     Indication: PAIN
     Route: 048
     Dates: start: 2006
  3. AMPICILLIN [Concomitant]
     Active Substance: AMPICILLIN
     Indication: PRODUCT USED FOR UNKNOWN INDICATION
     Route: 048
     Dates: start: 2006
  4. CORTICORTEN [Concomitant]
     Indication: PSORIASIS
     Route: 048
     Dates: start: 2006
  5. DONAREN [Concomitant]
     Active Substance: TRAZODONE HYDROCHLORIDE
     Indication: PAIN
     Route: 048
     Dates: start: 2016
  6. HUMIRA [Suspect]
     Active Substance: ADALIMUMAB
     Indication: PSORIASIS
     Route: 058
     Dates: start: 20130628, end: 201511
  7. DONAREN [Concomitant]
     Active Substance: TRAZODONE HYDROCHLORIDE
     Indication: DEPRESSION
  8. PREGABALIN. [Concomitant]
     Active Substance: PREGABALIN
     Indication: DEPRESSION
     Route: 048
     Dates: start: 201604
  9. RIVOTRIL [Concomitant]
     Active Substance: CLONAZEPAM
     Indication: DEPRESSION
     Route: 048
     Dates: start: 2006
  10. COMPLEX B [Concomitant]
     Active Substance: CALCIUM PANTOTHENATE\CYANOCOBALAMIN\NIACINAMIDE\PYRIDOXINE HYDROCHLORIDE\RIBOFLAVIN\THIAMINE MONONITRATE
     Indication: ASTHENIA
     Route: 048
  11. OMEPRAZOLE. [Concomitant]
     Active Substance: OMEPRAZOLE
     Indication: GASTRIC DISORDER
     Route: 048
  12. PREGABALIN. [Concomitant]
     Active Substance: PREGABALIN
     Indication: PAIN
  13. VITAMIN D [Concomitant]
     Active Substance: CHOLECALCIFEROL
     Indication: VITAMIN D DEFICIENCY
     Route: 048
  14. RIVOTRIL [Concomitant]
     Active Substance: CLONAZEPAM
     Indication: SLEEP DISORDER THERAPY

REACTIONS (17)
  - Tremor [Recovered/Resolved]
  - Psychiatric symptom [Recovered/Resolved]
  - Pain [Recovering/Resolving]
  - Psoriasis [Unknown]
  - Varicose ulceration [Recovered/Resolved]
  - Haemorrhage [Unknown]
  - Hypophagia [Recovering/Resolving]
  - Vomiting [Recovered/Resolved]
  - Visual acuity reduced [Recovered/Resolved]
  - Gait disturbance [Recovering/Resolving]
  - Swelling [Recovering/Resolving]
  - Drug ineffective [Recovering/Resolving]
  - Visual acuity reduced [Not Recovered/Not Resolved]
  - Mobility decreased [Recovering/Resolving]
  - Blister [Unknown]
  - Muscular weakness [Recovered/Resolved]
  - Depressed mood [Recovered/Resolved]
